FAERS Safety Report 7498073-5 (Version None)
Quarter: 2011Q2

REPORT INFORMATION
  Report Type: 
  Country: None (occurrence: None)
  Receive Date: 20110524
  Receipt Date: 20110512
  Transmission Date: 20111010
  Serious: No
  Sender: FDA-Public Use
  Company Number: US-BIOGENIDEC-2011BI018318

PATIENT
  Age: 37 Year
  Sex: Female

DRUGS (3)
  1. TYSABRI [Suspect]
     Indication: MULTIPLE SCLEROSIS
     Route: 042
     Dates: start: 20090720
  2. TYSABRI [Suspect]
     Route: 042
     Dates: start: 20041213, end: 20041213
  3. TYSABRI [Suspect]
     Route: 042
     Dates: start: 20070313, end: 20080311

REACTIONS (1)
  - FATIGUE [None]
